FAERS Safety Report 24629427 (Version 5)
Quarter: 2025Q1

REPORT INFORMATION
  Report Type: Report from Study
  Country: US (occurrence: US)
  Receive Date: 20241118
  Receipt Date: 20250105
  Transmission Date: 20250408
  Serious: Yes (Hospitalization, Other)
  Sender: ABBVIE
  Company Number: US-ABBVIE-6003554

PATIENT
  Age: 71 Year
  Sex: Male
  Weight: 84 kg

DRUGS (3)
  1. SKYRIZI [Suspect]
     Active Substance: RISANKIZUMAB-RZAA
     Indication: Psoriasis
     Dosage: FORM STRENGTH : 150 MILLIGRAM
     Route: 058
     Dates: start: 20190807
  2. SILODOSIN [Concomitant]
     Active Substance: SILODOSIN
     Indication: Prostatomegaly
  3. LISINOPRIL [Concomitant]
     Active Substance: LISINOPRIL
     Indication: Hypertension

REACTIONS (9)
  - Renal failure [Recovered/Resolved]
  - Atrioventricular block [Recovered/Resolved]
  - Asthenia [Recovered/Resolved]
  - Urinary retention [Recovered/Resolved]
  - Prostatomegaly [Not Recovered/Not Resolved]
  - Urinary retention [Recovered/Resolved]
  - Urinary retention [Recovered/Resolved]
  - Heart rate decreased [Recovered/Resolved]
  - Mobility decreased [Recovered/Resolved]

NARRATIVE: CASE EVENT DATE: 20240101
